FAERS Safety Report 17305276 (Version 1)
Quarter: 2020Q1

REPORT INFORMATION
  Report Type: Spontaneous
  Country: US (occurrence: US)
  Receive Date: 20200123
  Receipt Date: 20200123
  Transmission Date: 20200409
  Serious: No
  Sender: FDA-Public Use
  Company Number: US-MYLANLABS-2020M1004619

PATIENT
  Age: 62 Year
  Sex: Male
  Weight: 170 kg

DRUGS (1)
  1. WIXELA INHUB [Suspect]
     Active Substance: FLUTICASONE PROPIONATE\SALMETEROL XINAFOATE
     Indication: RESPIRATORY TRACT INFECTION
     Dosage: TWICE DAILY
     Route: 055
     Dates: start: 20200110, end: 20200110

REACTIONS (3)
  - Off label use [Recovered/Resolved]
  - Expired product administered [Recovered/Resolved]
  - No adverse event [Unknown]

NARRATIVE: CASE EVENT DATE: 20200110
